FAERS Safety Report 4984733-4 (Version None)
Quarter: 2006Q2

REPORT INFORMATION
  Report Type: 
  Country: None (occurrence: None)
  Receive Date: 20060427
  Receipt Date: 20051229
  Transmission Date: 20061013
  Serious: Yes (Hospitalization, Disabling, Other)
  Sender: FDA-Public Use
  Company Number: US-MERCK-0601USA00080

PATIENT
  Age: 51 Year
  Sex: Female
  Weight: 68 kg

DRUGS (2)
  1. VIOXX [Suspect]
     Indication: PAIN MANAGEMENT
     Route: 048
     Dates: start: 20000304, end: 20040104
  2. INDERAL [Concomitant]
     Route: 065
     Dates: start: 20000213, end: 20031027

REACTIONS (6)
  - ABDOMINAL PAIN [None]
  - ATRIAL SEPTAL DEFECT [None]
  - ISCHAEMIC STROKE [None]
  - JOINT SPRAIN [None]
  - MEMORY IMPAIRMENT [None]
  - PELVIC PAIN [None]
